FAERS Safety Report 7128662-9 (Version None)
Quarter: 2010Q4

REPORT INFORMATION
  Report Type: 
  Country: None (occurrence: None)
  Receive Date: 20101130
  Receipt Date: 20101118
  Transmission Date: 20110411
  Serious: Yes (Hospitalization, Disabling, Other)
  Sender: FDA-Public Use
  Company Number: US-ROCHE-722718

PATIENT
  Sex: Female

DRUGS (2)
  1. ACCUTANE [Suspect]
     Route: 065
     Dates: start: 19850101, end: 19850101
  2. TYLENOL (CAPLET) [Concomitant]

REACTIONS (7)
  - COLITIS ULCERATIVE [None]
  - DIVERTICULUM INTESTINAL [None]
  - GASTROINTESTINAL INJURY [None]
  - INFLAMMATORY BOWEL DISEASE [None]
  - IRRITABLE BOWEL SYNDROME [None]
  - OSTEOPENIA [None]
  - POLYP [None]
